FAERS Safety Report 10870264 (Version 1)
Quarter: 2015Q1

REPORT INFORMATION
  Report Type: Spontaneous
  Country: BR (occurrence: BR)
  Receive Date: 20150226
  Receipt Date: 20150226
  Transmission Date: 20150721
  Serious: Yes (Other)
  Sender: FDA-Public Use
  Company Number: BR-SA-2015SA022181

PATIENT
  Age: 9 Year
  Sex: Female
  Weight: 41 kg

DRUGS (3)
  1. ALLEGRA [Suspect]
     Active Substance: FEXOFENADINE HYDROCHLORIDE
     Indication: COUGH
     Dosage: FORM: PEDIATRIC ORAL SUSPENSION IN THE SYRINGE
     Route: 065
     Dates: start: 20150216, end: 20150218
  2. AVAMYS [Concomitant]
     Active Substance: FLUTICASONE FUROATE
     Indication: RHINITIS
     Dosage: DOSE: 1 SPRAY IN THE MORNING AND ONE AT NIGHT
     Route: 045
     Dates: start: 20150216
  3. ALLEGRA [Suspect]
     Active Substance: FEXOFENADINE HYDROCHLORIDE
     Indication: RHINITIS ALLERGIC
     Dosage: FORM: PEDIATRIC ORAL SUSPENSION IN THE SYRINGE
     Route: 065
     Dates: start: 20150216, end: 20150218

REACTIONS (4)
  - Swelling [Not Recovered/Not Resolved]
  - Retinal disorder [Not Recovered/Not Resolved]
  - Blister [Not Recovered/Not Resolved]
  - Hypersensitivity [Not Recovered/Not Resolved]

NARRATIVE: CASE EVENT DATE: 20150219
